FAERS Safety Report 8145137-9 (Version None)
Quarter: 2012Q1

REPORT INFORMATION
  Report Type: 
  Country: None (occurrence: None)
  Receive Date: 20120217
  Receipt Date: 20120208
  Transmission Date: 20120608
  Serious: Yes (Other)
  Sender: FDA-Public Use
  Company Number: PHHY2012SE012049

PATIENT
  Age: 55 Year
  Sex: Female

DRUGS (16)
  1. LOCOID [Concomitant]
  2. METHOTREXATE [Concomitant]
     Dosage: 2.5 MG, UNK
  3. LEVOTHYROXINE SODIUM [Concomitant]
     Dosage: 150 UG, UNK
  4. KALCIPOS-D [Concomitant]
  5. CANODERM [Concomitant]
  6. ALENDRONATE SODIUM [Suspect]
     Dosage: 70 MG/WEEK (FOR 3 MONTHS)
     Dates: start: 20091105, end: 20100127
  7. OCULAC [Concomitant]
  8. ZOPICLON [Concomitant]
     Dosage: 5 MG, UNK
  9. ZOLEDRONOC ACID [Suspect]
     Dosage: 5 MG, PER YEAR
     Route: 042
     Dates: start: 20100127
  10. ENBREL [Concomitant]
  11. TIPAROL [Concomitant]
     Dosage: 100 MG, UNK
  12. CARBOMER [Concomitant]
  13. FOLIC ACID [Concomitant]
     Dosage: 5 MG, UNK
  14. ACETAMINOPHEN [Concomitant]
  15. LOCERYL [Concomitant]
  16. DICLOFENAC [Concomitant]
     Dosage: 50 MG, UNK

REACTIONS (1)
  - OSTEONECROSIS [None]
